FAERS Safety Report 10049352 (Version 2)
Quarter: 2014Q2

REPORT INFORMATION
  Report Type: Report from Study
  Country: FR (occurrence: FR)
  Receive Date: 20140401
  Receipt Date: 20140401
  Transmission Date: 20141212
  Serious: Yes (Death)
  Sender: FDA-Public Use
  Company Number: FR-ROCHE-1361869

PATIENT
  Age: 57 Year
  Sex: Female

DRUGS (5)
  1. ZELBORAF [Suspect]
     Indication: MELANOMA RECURRENT
     Route: 048
  2. ZELBORAF [Suspect]
     Route: 048
     Dates: start: 201307, end: 201401
  3. VOGALENE LYOC [Concomitant]
     Indication: VOMITING
     Route: 048
     Dates: start: 201307
  4. METOCLOPRAMIDE [Concomitant]
     Indication: VOMITING
     Route: 048
     Dates: start: 201307
  5. PREDNISONE [Concomitant]
     Indication: VOMITING
     Route: 048
     Dates: start: 201307

REACTIONS (1)
  - Disease progression [Fatal]
